FAERS Safety Report 25375685 (Version 2)
Quarter: 2025Q2

REPORT INFORMATION
  Report Type: Spontaneous
  Country: US (occurrence: US)
  Receive Date: 20250529
  Receipt Date: 20250627
  Transmission Date: 20250717
  Serious: No
  Sender: SANOFI AVENTIS
  Company Number: US-SA-2025SA151358

PATIENT
  Age: 56 Year
  Sex: Female

DRUGS (17)
  1. DUPIXENT [Suspect]
     Active Substance: DUPILUMAB
     Indication: Hand dermatitis
     Dosage: 300 MG, QOW
     Route: 058
     Dates: start: 20240329
  2. ANASTROZOLE [Concomitant]
     Active Substance: ANASTROZOLE
  3. ARMOUR THYROID [Concomitant]
     Active Substance: THYROID, PORCINE
  4. AZITHROMYCIN [Concomitant]
     Active Substance: AZITHROMYCIN
  5. DEPO-MEDROL [Concomitant]
     Active Substance: METHYLPREDNISOLONE ACETATE
  6. DICLOFENAC [Concomitant]
     Active Substance: DICLOFENAC
  7. FLUCONAZOLE [Concomitant]
     Active Substance: FLUCONAZOLE
  8. FLUOXETINE [Concomitant]
     Active Substance: FLUOXETINE HYDROCHLORIDE
  9. METHYLPREDNISOLONE ACETATE [Concomitant]
     Active Substance: METHYLPREDNISOLONE ACETATE
  10. METHYLPREDNISOLONE [Concomitant]
     Active Substance: METHYLPREDNISOLONE
  11. NP THYROID [Concomitant]
     Active Substance: LEVOTHYROXINE\LIOTHYRONINE
  12. OTEZLA [Concomitant]
     Active Substance: APREMILAST
  13. OXYCODONE [Concomitant]
     Active Substance: OXYCODONE
  14. TASIGNA [Concomitant]
     Active Substance: NILOTINIB
  15. TOBRAMYCIN [Concomitant]
     Active Substance: TOBRAMYCIN
  16. HYDROCHLOROTHIAZIDE\TRIAMTERENE [Concomitant]
     Active Substance: HYDROCHLOROTHIAZIDE\TRIAMTERENE
  17. COVID-19 VACCINE [Concomitant]

REACTIONS (3)
  - Sleep disorder due to a general medical condition [Unknown]
  - Diarrhoea [Unknown]
  - Product use in unapproved indication [Unknown]

NARRATIVE: CASE EVENT DATE: 20240329
